FAERS Safety Report 4627165-0 (Version None)
Quarter: 2005Q2

REPORT INFORMATION
  Report Type: 
  Country: None (occurrence: None)
  Receive Date: 20050405
  Receipt Date: 20050328
  Transmission Date: 20051028
  Serious: Yes (Other)
  Sender: FDA-Public Use
  Company Number: ES-GLAXOSMITHKLINE-B0376618A

PATIENT
  Age: 50 Year
  Sex: Female

DRUGS (2)
  1. PAROXETINE HCL [Suspect]
     Indication: DEPRESSION
     Dosage: 20MG PER DAY
     Route: 065
     Dates: start: 20050101, end: 20050329
  2. NO CONCURRENT MEDICATION [Concomitant]

REACTIONS (5)
  - HYPERSENSITIVITY [None]
  - LARYNGEAL OEDEMA [None]
  - PYREXIA [None]
  - RASH MACULAR [None]
  - URTICARIA [None]
